FAERS Safety Report 8984019 (Version 1)
Quarter: 2012Q4

REPORT INFORMATION
  Report Type: Spontaneous
  Country: US (occurrence: None)
  Receive Date: 20121218
  Receipt Date: 20121218
  Transmission Date: 20130627
  Serious: Yes (Hospitalization)
  Sender: FDA-Public Use
  Company Number: None

PATIENT
  Age: 6 Year
  Sex: Female
  Weight: 20 kg

DRUGS (1)
  1. ARIPIPRAZOLE [Suspect]
     Route: 048
     Dates: start: 20121121, end: 20121123

REACTIONS (12)
  - Dyskinesia [None]
  - Muscle twitching [None]
  - Tremor [None]
  - Swelling face [None]
  - Protrusion tongue [None]
  - Dystonia [None]
  - Tachycardia [None]
  - Musculoskeletal stiffness [None]
  - Tremor [None]
  - Face oedema [None]
  - Mental status changes [None]
  - Irritability [None]
